FAERS Safety Report 8575735-X (Version None)
Quarter: 2012Q3

REPORT INFORMATION
  Report Type: 
  Country: None (occurrence: None)
  Receive Date: 20120807
  Receipt Date: 20120806
  Transmission Date: 20120928
  Serious: Yes (Death, Other)
  Sender: FDA-Public Use
  Company Number: PHFR2012IE002445

PATIENT
  Sex: Male

DRUGS (7)
  1. CLOZARIL [Suspect]
     Dosage: 450 MG, QD
     Route: 048
     Dates: start: 20010701
  2. PROCHLORPERAZINE [Concomitant]
     Dosage: 5 MG, QD
     Route: 048
  3. CLOZARIL [Suspect]
     Dosage: 300 MG, QD
     Route: 048
     Dates: start: 20090611
  4. ENSURE [Concomitant]
     Dosage: UKN, BID
     Route: 048
  5. KWELLS [Concomitant]
     Dosage: UKN, BID
     Route: 048
  6. ACETAMINOPHEN [Concomitant]
     Dosage: UKN, QD
     Route: 048
  7. REMERON [Suspect]
     Dosage: UKN, BID
     Route: 048

REACTIONS (4)
  - GENERAL PHYSICAL HEALTH DETERIORATION [None]
  - TERMINAL STATE [None]
  - SMALL CELL LUNG CANCER STAGE UNSPECIFIED [None]
  - LUNG SQUAMOUS CELL CARCINOMA STAGE UNSPECIFIED [None]
